FAERS Safety Report 9214332 (Version 2)
Quarter: 2013Q2

REPORT INFORMATION
  Report Type: Report from Study
  Country: DE (occurrence: DE)
  Receive Date: 20130405
  Receipt Date: 20130409
  Transmission Date: 20140414
  Serious: Yes (Hospitalization)
  Sender: FDA-Public Use
  Company Number: DE-ROCHE-1000080

PATIENT
  Age: 36 Year
  Sex: Female
  Weight: 45 kg

DRUGS (4)
  1. CAPECITABINE [Suspect]
     Indication: RECTAL CANCER
     Dosage: LAST DOSE PRIOR TO SAE: 18/SEP/2011. ACTUAL DOSE GIVEN AT LAST ADMINISTRATION: 1500 MG.
     Route: 048
     Dates: start: 20110203
  2. MCP [Concomitant]
     Indication: NAUSEA
     Route: 048
     Dates: start: 20110905
  3. MORPHINE [Concomitant]
     Indication: PAIN
     Route: 048
  4. CIPROBAY [Concomitant]
     Indication: INFECTION
     Route: 048
     Dates: start: 20110808, end: 20110913

REACTIONS (2)
  - Flank pain [Recovered/Resolved]
  - Device occlusion [Recovered/Resolved]
